FAERS Safety Report 12502019 (Version 8)
Quarter: 2017Q2

REPORT INFORMATION
  Report Type: Report from Study
  Country: US (occurrence: US)
  Receive Date: 20160627
  Receipt Date: 20170419
  Transmission Date: 20170830
  Serious: Yes (Other)
  Sender: FDA-Public Use
  Company Number: US-GILEAD-2016-0214514

PATIENT
  Age: 75 Year
  Sex: Female
  Weight: 124.72 kg

DRUGS (8)
  1. AMBRISENTAN [Suspect]
     Active Substance: AMBRISENTAN
     Indication: PRODUCT USED FOR UNKNOWN INDICATION
     Dosage: 10 MG, QD
     Route: 065
     Dates: start: 201408
  2. TYVASO [Suspect]
     Active Substance: TREPROSTINIL
     Dosage: 54 UG, QID
     Route: 055
  3. SILDENAFIL. [Concomitant]
     Active Substance: SILDENAFIL
  4. TYVASO [Suspect]
     Active Substance: TREPROSTINIL
     Dosage: 18 UG, QID
     Route: 055
     Dates: start: 201606
  5. TYVASO [Suspect]
     Active Substance: TREPROSTINIL
     Indication: PULMONARY ARTERIAL HYPERTENSION
     Dosage: 18-54 UG, (3-9 BREATH) QID
     Route: 055
     Dates: start: 20150501
  6. TYVASO [Suspect]
     Active Substance: TREPROSTINIL
     Dosage: 18 UG, UNK
     Route: 055
     Dates: start: 20160624
  7. ADEMPAS [Concomitant]
     Active Substance: RIOCIGUAT
  8. AMLODIPINE [Concomitant]
     Active Substance: AMLODIPINE BESYLATE

REACTIONS (10)
  - Unevaluable event [Unknown]
  - Haemoptysis [Unknown]
  - Nasal discomfort [Unknown]
  - Pulmonary arterial pressure increased [Unknown]
  - Cough [Not Recovered/Not Resolved]
  - Nasal congestion [Unknown]
  - Sinusitis [Unknown]
  - Oropharyngeal pain [Unknown]
  - Throat irritation [Unknown]
  - Productive cough [Unknown]

NARRATIVE: CASE EVENT DATE: 201605
